FAERS Safety Report 22220915 (Version 1)
Quarter: 2023Q2

REPORT INFORMATION
  Report Type: Spontaneous
  Country: IT (occurrence: IT)
  Receive Date: 20230418
  Receipt Date: 20230418
  Transmission Date: 20230721
  Serious: Yes (Other)
  Sender: FDA-Public Use
  Company Number: None

PATIENT
  Age: 75 Year
  Sex: Male
  Weight: 78 kg

DRUGS (1)
  1. BLINATUMOMAB [Suspect]
     Active Substance: BLINATUMOMAB
     Indication: Product used for unknown indication
     Dosage: DRUG STARTED ON 24-FEB-23, INTRAVENOUS IN CONTINUOUS INFUSION, AT A DOSAGE OF 9 MCG/DAY FOR THE FIRS
     Route: 040
     Dates: start: 20230224, end: 20230308

REACTIONS (3)
  - Syncope [Recovered/Resolved]
  - Chills [Recovered/Resolved]
  - Pyrexia [Recovered/Resolved]

NARRATIVE: CASE EVENT DATE: 20230308
